FAERS Safety Report 4510529-3 (Version None)
Quarter: 2004Q4

REPORT INFORMATION
  Report Type: 
  Country: None (occurrence: None)
  Receive Date: 20041122
  Receipt Date: 20041104
  Transmission Date: 20050328
  Serious: Yes (Hospitalization)
  Sender: FDA-Public Use
  Company Number: DSA_60457_2004

PATIENT
  Age: 18 Year
  Sex: Male

DRUGS (2)
  1. DIASTAT [Suspect]
     Dosage: DF
     Dates: start: 20041104
  2. METHADONE [Suspect]
     Dosage: DF
     Dates: start: 20041104

REACTIONS (1)
  - DRUG ABUSER [None]
